FAERS Safety Report 23437316 (Version 1)
Quarter: 2024Q1

REPORT INFORMATION
  Report Type: Spontaneous
  Country: US (occurrence: None)
  Receive Date: 20240122
  Receipt Date: 20240122
  Transmission Date: 20240410
  Serious: Yes (Life-Threatening, Other)
  Sender: FDA-Public Use
  Company Number: None

PATIENT
  Age: 73 Year
  Sex: Female
  Weight: 72.1 kg

DRUGS (3)
  1. LEVOPHED [Suspect]
     Active Substance: NOREPINEPHRINE BITARTRATE
  2. NEO-SYNEPHRINE [Suspect]
     Active Substance: PHENYLEPHRINE HYDROCHLORIDE
  3. EPINEPHRINE [Suspect]
     Active Substance: EPINEPHRINE

REACTIONS (3)
  - Device malfunction [None]
  - Blood pressure decreased [None]
  - Device infusion issue [None]

NARRATIVE: CASE EVENT DATE: 20231102
